FAERS Safety Report 12205712 (Version 3)
Quarter: 2016Q2

REPORT INFORMATION
  Report Type: Spontaneous
  Country: US (occurrence: US)
  Receive Date: 20160323
  Receipt Date: 20160614
  Transmission Date: 20160815
  Serious: Yes (Hospitalization, Other)
  Sender: FDA-Public Use
  Company Number: US-MDT-ADR-2016-00546

PATIENT
  Sex: Female
  Weight: 76 kg

DRUGS (19)
  1. DIOVAN HCT [Suspect]
     Active Substance: HYDROCHLOROTHIAZIDE\VALSARTAN
     Dosage: 12.5 MG TAB/DAY
     Route: 048
  2. MOVANTIK [Suspect]
     Active Substance: NALOXEGOL OXALATE
     Dosage: AS NEEDED
     Route: 048
  3. NUVIGIL [Suspect]
     Active Substance: ARMODAFINIL
     Dosage: IN AM
     Route: 048
  4. TYLENOL [Suspect]
     Active Substance: ACETAMINOPHEN
     Dosage: AS NEEDED FOR PAIN
     Route: 048
  5. LIDODERM [Suspect]
     Active Substance: LIDOCAINE
     Dosage: 5% ADHESIVE PATCH; APPLY 1 PATCH TO SKIN ONCE A DAY AS NEEDED
     Route: 062
     Dates: start: 20150704
  6. CYMBALTA [Suspect]
     Active Substance: DULOXETINE HYDROCHLORIDE
     Dosage: 2 CAPS ONCE/DAY
     Route: 048
  7. LIDOCAINE-PRILOCAINE [Suspect]
     Active Substance: LIDOCAINE\PRILOCAINE
     Dosage: 2.5-2.5% APPLY 1 LIBERALLY TO SKIN AS DIRECTED X 30 DAYS
     Route: 061
  8. LIPITOR [Suspect]
     Active Substance: ATORVASTATIN CALCIUM
     Dosage: 80 MG TAB; TAKE 1 TAB ONCE A DAY
     Route: 048
  9. PRADAXA [Suspect]
     Active Substance: DABIGATRAN ETEXILATE MESYLATE
     Dosage: 1 CAP TWICE/DAY, AS DIRECTED
     Route: 048
  10. BOTOX [Suspect]
     Active Substance: ONABOTULINUMTOXINA
  11. FISH OIL 9OMEGA-3 FATTY ACIDS) [Suspect]
     Active Substance: FISH OIL\OMEGA-3 FATTY ACIDS
     Dosage: 500 MG CAPSULE
     Route: 048
  12. NORCO [Suspect]
     Active Substance: ACETAMINOPHEN\HYDROCODONE BITARTRATE
     Dosage: 1 TAB EVERY FOUR HOURS, AS NEEDED
     Route: 048
  13. CELEBREX [Suspect]
     Active Substance: CELECOXIB
     Dosage: 1 CAP TWICE/DAY
     Route: 048
  14. LIORESAL [Suspect]
     Active Substance: BACLOFEN
     Route: 037
     Dates: start: 20160317
  15. LYRICA [Suspect]
     Active Substance: PREGABALIN
     Dosage: 1 TAB TWICE A DAY
     Route: 048
  16. GABLOFEN [Suspect]
     Active Substance: BACLOFEN
     Route: 037
  17. COMPOUNDED BACLOFEN [Suspect]
     Active Substance: BACLOFEN
     Dosage: 500MCG/DAY
     Route: 037
     Dates: end: 20160317
  18. MORPHINE DRUG, UNKNOWN [Suspect]
     Active Substance: MORPHINE
     Dosage: 0.2082 MG/DAY
     Route: 037
     Dates: end: 20160317
  19. CENTRUM ULTRA WOMEN^S (MULTIVIT-IRON-MIN-FOLIC ACID) 18 [Suspect]
     Active Substance: MINERALS\VITAMINS
     Dosage: 0.4 MG TAB/DAY
     Route: 048

REACTIONS (17)
  - Somnolence [Unknown]
  - Adverse drug reaction [Recovered/Resolved]
  - Confusional state [Recovered/Resolved]
  - Pain [Unknown]
  - Joint contracture [Unknown]
  - Musculoskeletal pain [Unknown]
  - Spinal osteoarthritis [Unknown]
  - Agitation [Unknown]
  - Muscle spasticity [Unknown]
  - Joint range of motion decreased [Unknown]
  - Oedema [Unknown]
  - Overdose [Recovered/Resolved]
  - Mental disorder [Recovered/Resolved]
  - Depression [Unknown]
  - Foot deformity [Unknown]
  - Gait spastic [Unknown]
  - Therapeutic response changed [Recovered/Resolved]
